FAERS Safety Report 9176008 (Version 1)
Quarter: 2013Q1

REPORT INFORMATION
  Report Type: Other
  Country: GB (occurrence: GB)
  Receive Date: 20130320
  Receipt Date: 20130320
  Transmission Date: 20140127
  Serious: Yes (Other)
  Sender: FDA-Public Use
  Company Number: GB-WATSON-2013-04926

PATIENT
  Sex: 0

DRUGS (1)
  1. PROPRANOLOL HYDROCHLORIDE (AELLC) [Suspect]
     Indication: HEADACHE
     Dosage: 40 MG, UNKNOWN
     Route: 065

REACTIONS (4)
  - Cognitive disorder [Recovering/Resolving]
  - Feeling abnormal [Recovering/Resolving]
  - Headache [Recovering/Resolving]
  - Reaction to drug excipients [Recovering/Resolving]
